FAERS Safety Report 24293175 (Version 1)
Quarter: 2024Q3

REPORT INFORMATION
  Report Type: Spontaneous
  Country: US (occurrence: None)
  Receive Date: 20240906
  Receipt Date: 20240906
  Transmission Date: 20241017
  Serious: No
  Sender: DOMPE FARMACEUTICI
  Company Number: US-FARMAPROD-202312-3558

PATIENT
  Sex: Male
  Weight: 5.18 kg

DRUGS (29)
  1. OXERVATE [Suspect]
     Active Substance: CENEGERMIN-BKBJ
     Indication: Neurotrophic keratopathy
     Route: 047
     Dates: start: 20231120, end: 20240123
  2. OXERVATE [Suspect]
     Active Substance: CENEGERMIN-BKBJ
     Route: 047
     Dates: start: 20240418
  3. OXERVATE [Suspect]
     Active Substance: CENEGERMIN-BKBJ
  4. OXERVATE [Suspect]
     Active Substance: CENEGERMIN-BKBJ
  5. ASPIRIN [Concomitant]
     Active Substance: ASPIRIN
  6. MELOXICAM [Concomitant]
     Active Substance: MELOXICAM
  7. DOCUSATE SODIUM [Concomitant]
     Active Substance: DOCUSATE SODIUM
  8. MONTELUKAST SODIUM [Concomitant]
     Active Substance: MONTELUKAST\MONTELUKAST SODIUM
  9. TADALAFIL [Concomitant]
     Active Substance: TADALAFIL
  10. TADALAFIL [Concomitant]
     Active Substance: TADALAFIL
  11. CARVEDILOL [Concomitant]
     Active Substance: CARVEDILOL
  12. LINZESS [Concomitant]
     Active Substance: LINACLOTIDE
  13. CAPSAICIN [Concomitant]
     Active Substance: CAPSAICIN
  14. ATORVASTATIN CALCIUM [Concomitant]
     Active Substance: ATORVASTATIN CALCIUM
  15. AZELASTINE HYDROCHLORIDE [Concomitant]
     Active Substance: AZELASTINE HYDROCHLORIDE
     Dosage: SPRAY/PUMP
  16. FLUTICASONE PROPIONATE [Concomitant]
     Active Substance: FLUTICASONE PROPIONATE
     Dosage: SPRAY SUSPENSION
  17. CILOSTAZOL [Concomitant]
     Active Substance: CILOSTAZOL
  18. ALBUTEROL SULFATE [Concomitant]
     Active Substance: ALBUTEROL SULFATE
     Dosage: HYDROFLUOROALKANE, AEROSOL WITH ADAPTER
  19. BIMATOPROST [Concomitant]
     Active Substance: BIMATOPROST
  20. FERROUS SULFATE [Concomitant]
     Active Substance: FERROUS SULFATE
     Dosage: 325(65)
  21. MYRBETRIQ [Concomitant]
     Active Substance: MIRABEGRON
  22. PANTOPRAZOLE SODIUM [Concomitant]
     Active Substance: PANTOPRAZOLE SODIUM
  23. TAMSULOSIN HYDROCHLORIDE [Concomitant]
     Active Substance: TAMSULOSIN HYDROCHLORIDE
  24. MULTAQ [Concomitant]
     Active Substance: DRONEDARONE
  25. NM-6603 [Concomitant]
     Active Substance: NM-6603
  26. ERYTHROMYCIN [Concomitant]
     Active Substance: ERYTHROMYCIN
  27. CARBOXYMETHYLCELLULOSE SODIUM [Concomitant]
     Active Substance: CARBOXYMETHYLCELLULOSE SODIUM
  28. LUMIGAN [Concomitant]
     Active Substance: BIMATOPROST
  29. SIMBRINZA [Concomitant]
     Active Substance: BRIMONIDINE TARTRATE\BRINZOLAMIDE
     Dosage: 1 %-0.2 %

REACTIONS (8)
  - Intentional product misuse [Unknown]
  - Product dose omission issue [Unknown]
  - Eye pain [Not Recovered/Not Resolved]
  - Lacrimation increased [Not Recovered/Not Resolved]
  - Eye swelling [Recovered/Resolved]
  - Swelling face [Recovered/Resolved]
  - Nasopharyngitis [Unknown]
  - Rhinorrhoea [Unknown]
